FAERS Safety Report 8833081 (Version 1)
Quarter: 2012Q4

REPORT INFORMATION
  Report Type: 
  Country: CA (occurrence: CA)
  Receive Date: 20121010
  Receipt Date: 20121010
  Transmission Date: 20130627
  Serious: Yes (Hospitalization, Other)
  Sender: FDA-Public Use
  Company Number: CA-NOVOPROD-361322

PATIENT
  Age: 68 Year
  Sex: Male

DRUGS (12)
  1. NOVOLIN N [Suspect]
     Indication: PRODUCT USED FOR UNKNOWN INDICATION
     Dosage: 10 IU, qd
     Route: 065
  2. NOVORAPID [Suspect]
     Indication: PRODUCT USED FOR UNKNOWN INDICATION
     Dosage: 45 IU, qd
     Route: 065
  3. METFORMIN [Suspect]
     Indication: PRODUCT USED FOR UNKNOWN INDICATION
     Dosage: 1000 mg, qd
     Route: 065
  4. METHOTREXATE [Suspect]
     Indication: PRODUCT USED FOR UNKNOWN INDICATION
     Route: 065
  5. TETRACYCLINE [Suspect]
     Indication: PRODUCT USED FOR UNKNOWN INDICATION
     Route: 065
  6. ZYVOXAM [Suspect]
     Indication: PRODUCT USED FOR UNKNOWN INDICATION
     Dosage: Therapy duration 17 days
     Route: 065
  7. ATROVENT [Concomitant]
  8. LEVOFLOXACIN [Concomitant]
  9. METRONIDAZOLE [Concomitant]
  10. SULFAMETHOXAZOLE AND TRIMETHOPRIM [Concomitant]
  11. VANCOMYCIN [Concomitant]
  12. VENTOLIN                           /00139501/ [Concomitant]

REACTIONS (10)
  - Anaemia [Unknown]
  - Condition aggravated [Unknown]
  - Haematuria [Unknown]
  - Pancytopenia [Unknown]
  - Peripheral ischaemia [Unknown]
  - Pharyngeal inflammation [Unknown]
  - Renal failure acute [Unknown]
  - Thrombocytopenia [Unknown]
  - Weight decreased [Unknown]
  - Drug hypersensitivity [Unknown]
